FAERS Safety Report 7564655-5 (Version None)
Quarter: 2011Q2

REPORT INFORMATION
  Report Type: 
  Country: None (occurrence: None)
  Receive Date: 20110622
  Receipt Date: 20100805
  Transmission Date: 20111010
  Serious: Yes (Other)
  Sender: FDA-Public Use
  Company Number: US-MYLANLABS-2010S1014207

PATIENT
  Age: 27 Year
  Sex: Male

DRUGS (5)
  1. CLOZAPINE [Suspect]
     Indication: SCHIZOPHRENIA
     Route: 048
     Dates: end: 20100727
  2. ATIVAN [Concomitant]
  3. COGENTIN [Concomitant]
  4. MULTI-VITAMIN [Concomitant]
  5. FLUPHENAZINE [Concomitant]

REACTIONS (1)
  - GRANULOCYTOPENIA [None]
